FAERS Safety Report 23307164 (Version 3)
Quarter: 2024Q1

REPORT INFORMATION
  Report Type: Report from Study
  Country: US (occurrence: US)
  Receive Date: 20231218
  Receipt Date: 20240220
  Transmission Date: 20240410
  Serious: Yes (Hospitalization)
  Sender: FDA-Public Use
  Company Number: US-AUROBINDO-AUR-APL-2023-050900

PATIENT
  Sex: Male
  Weight: 79.2 kg

DRUGS (5)
  1. BELINOSTAT [Suspect]
     Active Substance: BELINOSTAT
     Indication: Non-Hodgkin^s lymphoma unspecified histology aggressive
     Dosage: 750 MILLIGRAM/SQ. METER (PATIENT OFF-STUDY IN  FOLLOW UP. NO DRUG  ADMINISTERED.)
     Route: 065
     Dates: start: 20230320
  2. TAZEMETOSTAT [Suspect]
     Active Substance: TAZEMETOSTAT
     Indication: Non-Hodgkin^s lymphoma unspecified histology aggressive
     Dosage: 600 MILLIGRAM
     Route: 065
     Dates: start: 20230511
  3. BRENTUXIMAB VEDOTIN [Concomitant]
     Active Substance: BRENTUXIMAB VEDOTIN
     Indication: Product used for unknown indication
     Dosage: UNK
     Route: 065
  4. DEXAMETHASONE [Concomitant]
     Active Substance: DEXAMETHASONE
     Indication: Product used for unknown indication
     Dosage: 40 MILLIGRAM
     Route: 065
     Dates: start: 20230515
  5. DEXAMETHASONE [Concomitant]
     Active Substance: DEXAMETHASONE
     Dosage: 8 MILLIGRAM, TWO TIMES A DAY (MAINTAINED ON 8MG BID AT HOME)
     Route: 065

REACTIONS (7)
  - Hyperglycaemia [Recovered/Resolved]
  - Infusion related reaction [Unknown]
  - Nail disorder [Unknown]
  - Pain in extremity [Unknown]
  - Platelet count increased [Unknown]
  - Productive cough [Unknown]
  - Skin infection [Unknown]

NARRATIVE: CASE EVENT DATE: 20201005
